FAERS Safety Report 6167354-X (Version None)
Quarter: 2009Q2

REPORT INFORMATION
  Report Type: 
  Country: None (occurrence: None)
  Receive Date: 20090424
  Receipt Date: 20090415
  Transmission Date: 20091009
  Serious: Yes (Other)
  Sender: FDA-Public Use
  Company Number: US-JNJFOC-20080905276

PATIENT
  Sex: Female

DRUGS (6)
  1. DORIBAX [Suspect]
     Indication: ACINETOBACTER INFECTION
     Route: 041
     Dates: start: 20080902, end: 20080912
  2. CUBICIN [Suspect]
     Route: 065
  3. CUBICIN [Suspect]
     Indication: DRUG USE FOR UNKNOWN INDICATION
     Route: 065
  4. HEPARIN [Concomitant]
     Indication: DEEP VEIN THROMBOSIS
     Dosage: 5000 UNITS
     Route: 058
  5. TYGACIL [Concomitant]
  6. TYGACIL [Concomitant]

REACTIONS (1)
  - PANCYTOPENIA [None]
